FAERS Safety Report 17445852 (Version 15)
Quarter: 2023Q2

REPORT INFORMATION
  Report Type: Spontaneous
  Country: GR (occurrence: GR)
  Receive Date: 20200221
  Receipt Date: 20230403
  Transmission Date: 20230722
  Serious: Yes (Hospitalization, Other)
  Sender: FDA-Public Use
  Company Number: GR-ROCHE-2528781

PATIENT
  Sex: Female
  Weight: 60 kg

DRUGS (113)
  1. ALBUMIN HUMAN [Suspect]
     Active Substance: ALBUMIN HUMAN
     Indication: Non-Hodgkin^s lymphoma
     Dosage: 50 MILLIGRAM, 1 CYCLE 50 MGX2
     Route: 042
     Dates: start: 20200110, end: 20200113
  2. ALBUMIN HUMAN [Suspect]
     Active Substance: ALBUMIN HUMAN
     Indication: Hypertension
  3. ALBUMIN HUMAN [Suspect]
     Active Substance: ALBUMIN HUMAN
     Indication: Anaemia
  4. ALBUMIN HUMAN [Suspect]
     Active Substance: ALBUMIN HUMAN
     Indication: Diffuse large B-cell lymphoma
  5. ALBUMIN HUMAN [Suspect]
     Active Substance: ALBUMIN HUMAN
     Indication: Leukopenia
  6. CYCLOPHOSPHAMIDE\DOXORUBICIN\PREDNISONE\VINCRISTINE [Suspect]
     Active Substance: CYCLOPHOSPHAMIDE\DOXORUBICIN\PREDNISONE\VINCRISTINE
     Indication: Diffuse large B-cell lymphoma
     Dosage: 8 CYCLES
     Route: 065
     Dates: start: 20190513, end: 20191013
  7. CUBICIN [Suspect]
     Active Substance: DAPTOMYCIN
     Indication: Non-Hodgkin^s lymphoma
     Dosage: 350 MG 1 CYCLE
     Route: 042
     Dates: start: 20200102, end: 20200113
  8. CUBICIN [Suspect]
     Active Substance: DAPTOMYCIN
     Indication: Anaemia
  9. CUBICIN [Suspect]
     Active Substance: DAPTOMYCIN
     Indication: Leukopenia
  10. CUBICIN [Suspect]
     Active Substance: DAPTOMYCIN
     Indication: Diffuse large B-cell lymphoma
  11. CUBICIN [Suspect]
     Active Substance: DAPTOMYCIN
     Indication: Hypertension
  12. ALDACTONE [Suspect]
     Active Substance: SPIRONOLACTONE
     Indication: Non-Hodgkin^s lymphoma
     Dosage: 100 MILLIGRAM, 1 CYCLE
     Route: 048
     Dates: start: 20200105, end: 20200112
  13. ALDACTONE [Suspect]
     Active Substance: SPIRONOLACTONE
     Indication: Diffuse large B-cell lymphoma
  14. ALDACTONE [Suspect]
     Active Substance: SPIRONOLACTONE
     Indication: Leukopenia
  15. ALDACTONE [Suspect]
     Active Substance: SPIRONOLACTONE
     Indication: Anaemia
  16. ALDACTONE [Suspect]
     Active Substance: SPIRONOLACTONE
     Indication: Hypertension
  17. MEROPENEM [Suspect]
     Active Substance: MEROPENEM
     Indication: Non-Hodgkin^s lymphoma
     Dosage: 1 CYCLE 2G X 3
     Route: 042
     Dates: start: 20200103, end: 20200113
  18. EPREX [Suspect]
     Active Substance: ERYTHROPOIETIN
     Indication: Anaemia
     Dosage: 1 CYCLE
     Route: 058
     Dates: start: 20190523, end: 20200124
  19. LASIX [Suspect]
     Active Substance: FUROSEMIDE
     Indication: Non-Hodgkin^s lymphoma
     Dosage: UNK (1 CYCLE)
     Route: 042
     Dates: start: 20200110, end: 20200113
  20. LASIX [Suspect]
     Active Substance: FUROSEMIDE
     Indication: Leukopenia
  21. LASIX [Suspect]
     Active Substance: FUROSEMIDE
     Indication: Anaemia
  22. LASIX [Suspect]
     Active Substance: FUROSEMIDE
     Indication: Hypertension
  23. LASIX [Suspect]
     Active Substance: FUROSEMIDE
     Indication: Diffuse large B-cell lymphoma
  24. CYTARABINE [Suspect]
     Active Substance: CYTARABINE
     Indication: Non-Hodgkin^s lymphoma
     Dosage: 3 GRAM, 2 CYCLES
     Route: 042
     Dates: start: 20191123, end: 20200113
  25. CANCIDAS [Suspect]
     Active Substance: CASPOFUNGIN ACETATE
     Indication: Non-Hodgkin^s lymphoma
     Dosage: 50.0MG UNKNOWN
     Route: 042
     Dates: start: 20200105, end: 20200113
  26. CANCIDAS [Suspect]
     Active Substance: CASPOFUNGIN ACETATE
     Indication: Anaemia
  27. CANCIDAS [Suspect]
     Active Substance: CASPOFUNGIN ACETATE
     Indication: Leukopenia
  28. CANCIDAS [Suspect]
     Active Substance: CASPOFUNGIN ACETATE
     Indication: Hypertension
  29. CANCIDAS [Suspect]
     Active Substance: CASPOFUNGIN ACETATE
     Indication: Diffuse large B-cell lymphoma
  30. MABTHERA [Suspect]
     Active Substance: RITUXIMAB
     Indication: Non-Hodgkin^s lymphoma
     Dosage: 650 MILLIGRAM, 1 CYCLE
     Route: 058
     Dates: start: 20191222, end: 20200113
  31. MABTHERA [Suspect]
     Active Substance: RITUXIMAB
     Indication: Anaemia
     Dosage: 1400 MILLIGRAM, 6 CYCLES
     Route: 058
     Dates: start: 20190525, end: 20191009
  32. MABTHERA [Suspect]
     Active Substance: RITUXIMAB
     Indication: Leukopenia
     Dosage: 1400 MILLIGRAM, 1 CYCLES
     Route: 058
     Dates: start: 20191113, end: 20191210
  33. MABTHERA [Suspect]
     Active Substance: RITUXIMAB
     Indication: Hypertension
  34. MABTHERA [Suspect]
     Active Substance: RITUXIMAB
     Indication: Diffuse large B-cell lymphoma
  35. LOSEC [Suspect]
     Active Substance: OMEPRAZOLE
     Indication: Non-Hodgkin^s lymphoma
     Dosage: 1 CYCLES TWICE
     Route: 042
     Dates: start: 20191223, end: 20200113
  36. LOSEC [Suspect]
     Active Substance: OMEPRAZOLE
     Indication: Diffuse large B-cell lymphoma
  37. LOSEC [Suspect]
     Active Substance: OMEPRAZOLE
     Indication: Leukopenia
  38. LOSEC [Suspect]
     Active Substance: OMEPRAZOLE
     Indication: Anaemia
  39. LOSEC [Suspect]
     Active Substance: OMEPRAZOLE
     Indication: Hypertension
  40. DOXORUBICIN HYDROCHLORIDE [Suspect]
     Active Substance: DOXORUBICIN HYDROCHLORIDE
     Indication: Non-Hodgkin^s lymphoma
     Dosage: 75 MILLIGRAM, 8 CYCLES
     Route: 042
     Dates: start: 20190513, end: 20200124
  41. RITUXIMAB [Suspect]
     Active Substance: RITUXIMAB
     Indication: Diffuse large B-cell lymphoma
     Dosage: 3 CYCLES
     Route: 058
     Dates: start: 20190513, end: 20190625
  42. RITUXIMAB [Suspect]
     Active Substance: RITUXIMAB
     Indication: Non-Hodgkin^s lymphoma
     Dosage: 8 CYCLES
     Route: 042
     Dates: start: 20190513, end: 20191013
  43. RITUXIMAB [Suspect]
     Active Substance: RITUXIMAB
     Dosage: 8 CYCLES
     Route: 042
     Dates: start: 20191113, end: 20191223
  44. CISPLATIN [Suspect]
     Active Substance: CISPLATIN
     Indication: Non-Hodgkin^s lymphoma
     Dosage: 38 MILLIGRAM, 2 CYCLES
     Route: 042
     Dates: start: 20191119, end: 20200113
  45. CISPLATIN [Suspect]
     Active Substance: CISPLATIN
     Indication: Diffuse large B-cell lymphoma
  46. FILGRASTIM [Suspect]
     Active Substance: FILGRASTIM
     Indication: Non-Hodgkin^s lymphoma
     Dosage: UNK
     Route: 058
     Dates: start: 20190523, end: 20200117
  47. FILGRASTIM [Suspect]
     Active Substance: FILGRASTIM
     Indication: Leukopenia
  48. FILGRASTIM [Suspect]
     Active Substance: FILGRASTIM
     Indication: Hypertension
  49. FILGRASTIM [Suspect]
     Active Substance: FILGRASTIM
     Indication: Diffuse large B-cell lymphoma
  50. FILGRASTIM [Suspect]
     Active Substance: FILGRASTIM
     Indication: Anaemia
  51. CISPLATIN\CYTARABINE\ETOPOSIDE\METHYLPREDNISOLONE (ESHAP) [Suspect]
     Active Substance: CISPLATIN\CYTARABINE\ETOPOSIDE\METHYLPREDNISOLONE (ESHAP)
     Indication: Diffuse large B-cell lymphoma
     Dosage: UNK (2 CYCLES)
     Route: 065
     Dates: start: 20191113, end: 20191223
  52. CISPLATIN\CYTARABINE\ETOPOSIDE\METHYLPREDNISOLONE (ESHAP) [Suspect]
     Active Substance: CISPLATIN\CYTARABINE\ETOPOSIDE\METHYLPREDNISOLONE (ESHAP)
     Dosage: UNK
     Route: 065
  53. CISPLATIN\CYTARABINE\ETOPOSIDE\METHYLPREDNISOLONE (ESHAP) [Suspect]
     Active Substance: CISPLATIN\CYTARABINE\ETOPOSIDE\METHYLPREDNISOLONE (ESHAP)
     Dosage: UNK
  54. VALTREX [Suspect]
     Active Substance: VALACYCLOVIR HYDROCHLORIDE
     Indication: Non-Hodgkin^s lymphoma
     Dosage: 500 GRAM, 1 CYCLE
     Route: 048
     Dates: start: 20200108, end: 20200113
  55. VALTREX [Suspect]
     Active Substance: VALACYCLOVIR HYDROCHLORIDE
     Indication: Anaemia
     Dosage: 500 MILLIGRAM
     Route: 048
     Dates: start: 20190513, end: 20190516
  56. VALTREX [Suspect]
     Active Substance: VALACYCLOVIR HYDROCHLORIDE
     Indication: Hypertension
     Dosage: UNK
     Route: 042
  57. VALTREX [Suspect]
     Active Substance: VALACYCLOVIR HYDROCHLORIDE
     Indication: Diffuse large B-cell lymphoma
  58. VALTREX [Suspect]
     Active Substance: VALACYCLOVIR HYDROCHLORIDE
     Indication: Leukopenia
  59. VEPESID [Suspect]
     Active Substance: ETOPOSIDE
     Indication: Non-Hodgkin^s lymphoma
     Dosage: 90 MILLIGRAM, 2 CYCLE
     Route: 042
     Dates: start: 20191119, end: 20200113
  60. VEPESID [Suspect]
     Active Substance: ETOPOSIDE
     Indication: Diffuse large B-cell lymphoma
  61. VEPESID [Suspect]
     Active Substance: ETOPOSIDE
     Indication: Anaemia
  62. VEPESID [Suspect]
     Active Substance: ETOPOSIDE
     Indication: Hypertension
  63. VEPESID [Suspect]
     Active Substance: ETOPOSIDE
     Indication: Leukopenia
  64. NORVASC [Suspect]
     Active Substance: AMLODIPINE BESYLATE
     Indication: Hypertension
     Dosage: 5 MILLIGRAM, 1 CYCLE
     Route: 048
     Dates: start: 20190515, end: 20190516
  65. NORVASC [Suspect]
     Active Substance: AMLODIPINE BESYLATE
     Indication: Diffuse large B-cell lymphoma
  66. NORVASC [Suspect]
     Active Substance: AMLODIPINE BESYLATE
     Indication: Anaemia
  67. NORVASC [Suspect]
     Active Substance: AMLODIPINE BESYLATE
     Indication: Non-Hodgkin^s lymphoma
  68. NORVASC [Suspect]
     Active Substance: AMLODIPINE BESYLATE
     Indication: Leukopenia
  69. RITUXAN [Suspect]
     Active Substance: RITUXIMAB
     Indication: Diffuse large B-cell lymphoma
     Dosage: UNK
     Route: 058
     Dates: start: 20190513, end: 20190625
  70. RITUXAN [Suspect]
     Active Substance: RITUXIMAB
     Dosage: UNK
     Route: 065
  71. RITUXAN [Suspect]
     Active Substance: RITUXIMAB
     Dosage: UNK
  72. RITUXAN [Suspect]
     Active Substance: RITUXIMAB
     Dosage: UNK
  73. PREDNISONE [Suspect]
     Active Substance: PREDNISONE
     Indication: Diffuse large B-cell lymphoma
     Dosage: UNK
     Route: 065
  74. PREDNISONE [Suspect]
     Active Substance: PREDNISONE
     Indication: Hypertension
  75. PREDNISONE [Suspect]
     Active Substance: PREDNISONE
     Indication: Leukopenia
  76. PREDNISONE [Suspect]
     Active Substance: PREDNISONE
     Indication: Non-Hodgkin^s lymphoma
  77. PREDNISONE [Suspect]
     Active Substance: PREDNISONE
     Indication: Anaemia
  78. HYALURONIDASE (HUMAN RECOMBINANT) [Suspect]
     Active Substance: HYALURONIDASE (HUMAN RECOMBINANT)
     Indication: Diffuse large B-cell lymphoma
     Dosage: 3 CYCLES
     Dates: start: 20190513, end: 20190625
  79. HYALURONIDASE (HUMAN RECOMBINANT) [Suspect]
     Active Substance: HYALURONIDASE (HUMAN RECOMBINANT)
     Indication: Non-Hodgkin^s lymphoma
  80. DOXORUBICIN [Suspect]
     Active Substance: DOXORUBICIN
     Indication: Non-Hodgkin^s lymphoma
     Dosage: 75 MILLIGRAM, 8 CYCLES
     Dates: start: 20190513, end: 20191009
  81. DOXORUBICIN [Suspect]
     Active Substance: DOXORUBICIN
     Indication: Diffuse large B-cell lymphoma
  82. DOXORUBICIN [Suspect]
     Active Substance: DOXORUBICIN
     Indication: Hypertension
  83. DOXORUBICIN [Suspect]
     Active Substance: DOXORUBICIN
     Indication: Anaemia
  84. DOXORUBICIN [Suspect]
     Active Substance: DOXORUBICIN
     Indication: Leukopenia
  85. ERYTHROPOIETIN [Suspect]
     Active Substance: ERYTHROPOIETIN
     Indication: Anaemia
     Dosage: 1 CYCLE
     Dates: start: 20190523, end: 20200124
  86. VINCRISTINE SULFATE [Suspect]
     Active Substance: VINCRISTINE SULFATE
     Indication: Non-Hodgkin^s lymphoma
     Dosage: 8 CYCLES
     Dates: start: 20190513, end: 20191013
  87. VINCRISTINE SULFATE [Suspect]
     Active Substance: VINCRISTINE SULFATE
     Indication: Diffuse large B-cell lymphoma
  88. VINCRISTINE SULFATE [Suspect]
     Active Substance: VINCRISTINE SULFATE
     Indication: Anaemia
  89. VINCRISTINE SULFATE [Suspect]
     Active Substance: VINCRISTINE SULFATE
     Indication: Hypertension
  90. VINCRISTINE SULFATE [Suspect]
     Active Substance: VINCRISTINE SULFATE
     Indication: Leukopenia
  91. CHLORPHENIRAMINE MALEATE [Suspect]
     Active Substance: CHLORPHENIRAMINE MALEATE
     Indication: Non-Hodgkin^s lymphoma
     Dosage: UNK
     Route: 048
     Dates: start: 20200110, end: 20200112
  92. CHLORPHENIRAMINE MALEATE [Suspect]
     Active Substance: CHLORPHENIRAMINE MALEATE
     Indication: Diffuse large B-cell lymphoma
  93. CHLORPHENIRAMINE MALEATE [Suspect]
     Active Substance: CHLORPHENIRAMINE MALEATE
     Indication: Leukopenia
  94. CHLORPHENIRAMINE MALEATE [Suspect]
     Active Substance: CHLORPHENIRAMINE MALEATE
     Indication: Hypertension
  95. CHLORPHENIRAMINE MALEATE [Suspect]
     Active Substance: CHLORPHENIRAMINE MALEATE
     Indication: Anaemia
  96. VALACYCLOVIR HYDROCHLORIDE [Suspect]
     Active Substance: VALACYCLOVIR HYDROCHLORIDE
     Indication: Product used for unknown indication
     Route: 065
  97. METHYLPREDNISOLONE [Suspect]
     Active Substance: METHYLPREDNISOLONE
     Indication: Diffuse large B-cell lymphoma
     Route: 065
  98. DAPTOMYCIN [Suspect]
     Active Substance: DAPTOMYCIN
     Indication: Product used for unknown indication
     Route: 065
  99. CYTARABINE [Suspect]
     Active Substance: CYTARABINE
     Indication: Diffuse large B-cell lymphoma
     Route: 065
  100. CYTARABINE [Suspect]
     Active Substance: CYTARABINE
     Indication: Anaemia
  101. CYTARABINE [Suspect]
     Active Substance: CYTARABINE
     Indication: Leukopenia
  102. CYTARABINE [Suspect]
     Active Substance: CYTARABINE
     Indication: Non-Hodgkin^s lymphoma
  103. CYTARABINE [Suspect]
     Active Substance: CYTARABINE
     Indication: Hypertension
  104. CYCLOPHOSPHAMIDE [Suspect]
     Active Substance: CYCLOPHOSPHAMIDE
     Indication: Diffuse large B-cell lymphoma
     Route: 065
  105. CYCLOPHOSPHAMIDE [Suspect]
     Active Substance: CYCLOPHOSPHAMIDE
     Indication: Non-Hodgkin^s lymphoma
  106. CYCLOPHOSPHAMIDE [Suspect]
     Active Substance: CYCLOPHOSPHAMIDE
     Indication: Leukopenia
  107. CYCLOPHOSPHAMIDE [Suspect]
     Active Substance: CYCLOPHOSPHAMIDE
     Indication: Hypertension
  108. CYCLOPHOSPHAMIDE [Suspect]
     Active Substance: CYCLOPHOSPHAMIDE
     Indication: Anaemia
  109. ERYTHROPOIETIN [Suspect]
     Active Substance: ERYTHROPOIETIN
     Indication: Leukopenia
     Route: 065
  110. ERYTHROPOIETIN [Suspect]
     Active Substance: ERYTHROPOIETIN
     Indication: Hypertension
  111. ERYTHROPOIETIN [Suspect]
     Active Substance: ERYTHROPOIETIN
     Indication: Diffuse large B-cell lymphoma
  112. ERYTHROPOIETIN [Suspect]
     Active Substance: ERYTHROPOIETIN
     Indication: Anaemia
  113. ERYTHROPOIETIN [Suspect]
     Active Substance: ERYTHROPOIETIN
     Indication: Non-Hodgkin^s lymphoma

REACTIONS (5)
  - Diffuse large B-cell lymphoma refractory [Unknown]
  - Neoplasm progression [Unknown]
  - No adverse event [Unknown]
  - Off label use [Unknown]
  - Medication error [Unknown]
